FAERS Safety Report 8114146-8 (Version None)
Quarter: 2012Q1

REPORT INFORMATION
  Report Type: 
  Country: None (occurrence: None)
  Receive Date: 20120204
  Receipt Date: 20120123
  Transmission Date: 20120608
  Serious: Yes (Other)
  Sender: FDA-Public Use
  Company Number: US-MYLANLABS-2012S1002011

PATIENT
  Age: 39 Year
  Sex: Female

DRUGS (8)
  1. TRAZODONE HCL [Suspect]
     Indication: BIPOLAR DISORDER
     Dosage: Q AT BEDTIME
     Route: 065
  2. BUPRENORPHINE HCL AND NALOXONE HCL [Interacting]
     Indication: DRUG DEPENDENCE
     Dosage: 4MG; THEN 8MG DAILY FOR NEXT 2D
     Route: 060
  3. BUPRENORPHINE HCL AND NALOXONE HCL [Interacting]
     Dosage: 8MG DAILY
     Route: 060
  4. HALOPERIDOL [Interacting]
     Indication: BIPOLAR DISORDER
     Dosage: AT BEDTIME
     Route: 065
  5. QUETIAPINE [Interacting]
     Indication: BIPOLAR DISORDER
     Dosage: 150MG BID AND 300MG AT BEDTIME
     Route: 065
  6. CLONAZEPAM [Interacting]
     Indication: BIPOLAR DISORDER
     Dosage: 1MG QAM, 2MG QPM
     Route: 065
  7. CITALOPRAM [Concomitant]
     Indication: BIPOLAR DISORDER
     Dosage: 40MG Q DAY
     Route: 065
  8. BENZTROPINE MESYLATE [Concomitant]
     Indication: BIPOLAR DISORDER
     Dosage: AT HS
     Route: 065

REACTIONS (2)
  - DEPRESSED LEVEL OF CONSCIOUSNESS [None]
  - DRUG INTERACTION [None]
